FAERS Safety Report 7774047-1 (Version None)
Quarter: 2011Q3

REPORT INFORMATION
  Report Type: 
  Country: None (occurrence: None)
  Receive Date: 20110923
  Receipt Date: 20110921
  Transmission Date: 20111222
  Serious: Yes (Hospitalization)
  Sender: FDA-Public Use
  Company Number: US-PFIZER INC-2011225133

PATIENT
  Sex: Male
  Weight: 113.38 kg

DRUGS (1)
  1. ZOSYN [Suspect]
     Indication: TINEA PEDIS
     Dosage: 3.37 G, 3-4 TIMES A DAY
     Route: 042
     Dates: start: 20110101, end: 20110908

REACTIONS (1)
  - LOSS OF CONSCIOUSNESS [None]
